FAERS Safety Report 9125255 (Version 3)
Quarter: 2013Q2

REPORT INFORMATION
  Report Type: Spontaneous
  Country: US (occurrence: US)
  Receive Date: 20130227
  Receipt Date: 20130409
  Transmission Date: 20140414
  Serious: Yes (Hospitalization)
  Sender: FDA-Public Use
  Company Number: US-ALEXION-A201300269

PATIENT
  Sex: Female
  Weight: 18.3 kg

DRUGS (12)
  1. SOLIRIS 300MG [Suspect]
     Indication: HAEMOLYTIC URAEMIC SYNDROME
     Dosage: 300 MG, UNK
     Route: 042
     Dates: start: 201112
  2. NORVASC [Concomitant]
     Dosage: 1 ML, QD
     Route: 048
  3. VASOTEC [Concomitant]
     Dosage: 3 ML, BID
     Route: 048
  4. QVAR [Concomitant]
     Dosage: 2 PUFFS 8.7 G, BID
  5. MEPRON [Concomitant]
     Dosage: 7503.5 ML, QD
     Route: 048
  6. FLINTSTONES MULTIVITAMINS WITH IRON [Concomitant]
     Dosage: 15 MG, QD
     Route: 048
  7. ALBUTEROL [Concomitant]
     Indication: COUGH
     Dosage: 2 PUFFS, Q4HRS PRN
  8. ALBUTEROL [Concomitant]
     Indication: WHEEZING
  9. ALBUTEROL [Concomitant]
     Indication: DYSPNOEA
  10. TYLENOL [Concomitant]
     Dosage: UNK
     Route: 048
  11. VENTOLIN HFA [Concomitant]
     Indication: WHEEZING
     Dosage: 2 PUFFS Q6HRS PRN
  12. VENTOLIN HFA [Concomitant]
     Indication: COUGH

REACTIONS (1)
  - Asthma [Recovering/Resolving]
